FAERS Safety Report 13096049 (Version 1)
Quarter: 2017Q1

REPORT INFORMATION
  Report Type: Spontaneous
  Country: US (occurrence: US)
  Receive Date: 20170109
  Receipt Date: 20170109
  Transmission Date: 20170428
  Serious: No
  Sender: FDA-Public Use
  Company Number: US-ASTRAZENECA-2016SF38472

PATIENT
  Age: 79 Year
  Sex: Male
  Weight: 102.1 kg

DRUGS (3)
  1. OXYGEN. [Concomitant]
     Active Substance: OXYGEN
     Indication: CARDIAC DISORDER
     Route: 045
     Dates: start: 2015
  2. NEBULIZER [Concomitant]
     Active Substance: DEVICE
  3. TUDORZA PRESSAIR [Suspect]
     Active Substance: ACLIDINIUM BROMIDE
     Dosage: 400MCG 1 PUFF TWICE DAILY
     Route: 055
     Dates: start: 2013

REACTIONS (4)
  - Dyspnoea [Unknown]
  - Intentional device misuse [Unknown]
  - Oxygen saturation decreased [Unknown]
  - Device issue [Unknown]

NARRATIVE: CASE EVENT DATE: 2015
